FAERS Safety Report 7376553-0 (Version None)
Quarter: 2011Q1

REPORT INFORMATION
  Report Type: 
  Country: None (occurrence: None)
  Receive Date: 20110325
  Receipt Date: 20110316
  Transmission Date: 20110831
  Serious: Yes (Other)
  Sender: FDA-Public Use
  Company Number: US-ROCHE-766142

PATIENT
  Age: 57 Year

DRUGS (1)
  1. BONIVA [Suspect]
     Route: 065
     Dates: start: 20100905

REACTIONS (5)
  - PAIN IN EXTREMITY [None]
  - WEIGHT BEARING DIFFICULTY [None]
  - MUSCLE SPASMS [None]
  - ACTIVITIES OF DAILY LIVING IMPAIRED [None]
  - PELVIC FRACTURE [None]
